FAERS Safety Report 8987321 (Version 3)
Quarter: 2013Q1

REPORT INFORMATION
  Report Type: Spontaneous
  Country: GB (occurrence: GB)
  Receive Date: 20121226
  Receipt Date: 20130306
  Transmission Date: 20140127
  Serious: Yes (Other)
  Sender: FDA-Public Use
  Company Number: PHFR2012GB006113

PATIENT
  Age: 17 Year
  Sex: Male

DRUGS (3)
  1. CLOZARIL [Suspect]
     Indication: SCHIZOAFFECTIVE DISORDER
     Dosage: UNK
     Route: 048
     Dates: start: 20120702
  2. OLANZAPINE [Concomitant]
     Indication: SCHIZOAFFECTIVE DISORDER
     Dosage: 2.5 MG, UNK
     Route: 048
  3. EPILAM [Concomitant]
     Indication: SCHIZOAFFECTIVE DISORDER
     Dosage: UNK (10 ML, QDS)
     Route: 048

REACTIONS (5)
  - Aortic valve disease [Not Recovered/Not Resolved]
  - Aortic valve incompetence [Not Recovered/Not Resolved]
  - Aortic dilatation [Not Recovered/Not Resolved]
  - Tachycardia [Recovering/Resolving]
  - Heart rate increased [Recovering/Resolving]
